FAERS Safety Report 8056715-X (Version None)
Quarter: 2012Q1

REPORT INFORMATION
  Report Type: 
  Country: None (occurrence: None)
  Receive Date: 20120119
  Receipt Date: 20120109
  Transmission Date: 20120608
  Serious: Yes (Life-Threatening)
  Sender: FDA-Public Use
  Company Number: FR-PFIZER INC-2012006814

PATIENT
  Age: 65 Year
  Sex: Female

DRUGS (4)
  1. ERBITUX [Suspect]
     Indication: COLORECTAL CANCER METASTATIC
     Dosage: 650 MG, CYCLIC (D1-8)
     Dates: start: 20091221, end: 20100210
  2. LEVOLEUCOVORIN CALCIUM [Suspect]
     Indication: COLORECTAL CANCER METASTATIC
     Dosage: 230 MG, CYCLIC (D1)
     Route: 042
     Dates: start: 20091221, end: 20100203
  3. IRINOTECAN HCL [Suspect]
     Indication: COLORECTAL CANCER METASTATIC
     Dosage: 300 MG, CYCLIC (D1)
     Route: 042
     Dates: start: 20091221, end: 20100203
  4. FLUOROURACIL [Suspect]
     Indication: COLORECTAL CANCER METASTATIC
     Dosage: 400 MG/M2, CYCLIC (D1-2)
     Route: 042
     Dates: start: 20091221, end: 20100204

REACTIONS (1)
  - LARGE INTESTINE PERFORATION [None]
